FAERS Safety Report 5086304-0 (Version None)
Quarter: 2006Q3

REPORT INFORMATION
  Report Type: 
  Country: None (occurrence: None)
  Receive Date: 20060821
  Receipt Date: 20060821
  Transmission Date: 20061208
  Serious: No
  Sender: FDA-Public Use
  Company Number: None

PATIENT
  Age: 30 Year
  Sex: Female
  Weight: 57.2 kg

DRUGS (14)
  1. OMNISCAN [Suspect]
     Indication: ANGIOGRAM
     Dosage: 30 CC ONE TIME INJECTION
     Route: 042
     Dates: start: 20050111, end: 20050111
  2. OMNISCAN [Suspect]
     Indication: NUCLEAR MAGNETIC RESONANCE IMAGING
     Dosage: 30 CC ONE TIME INJECTION
     Route: 042
     Dates: start: 20050111, end: 20050111
  3. LASIX [Concomitant]
  4. EPOGEN [Concomitant]
  5. PREDNISONE TAB [Concomitant]
  6. PROGRAF [Concomitant]
  7. ADALAT [Concomitant]
  8. LABETALOL HCL [Concomitant]
  9. CELLCEPT [Concomitant]
  10. PEPCID [Concomitant]
  11. MYCELEX [Concomitant]
  12. FK506 [Concomitant]
  13. VALCYTE [Concomitant]
  14. LOPRESSOR [Concomitant]

REACTIONS (10)
  - DEEP VEIN THROMBOSIS [None]
  - GAIT DISTURBANCE [None]
  - MUSCLE CONTRACTURE [None]
  - OEDEMA PERIPHERAL [None]
  - SKIN DISCOLOURATION [None]
  - SKIN EXFOLIATION [None]
  - SKIN FIBROSIS [None]
  - SKIN HYPERTROPHY [None]
  - SKIN INDURATION [None]
  - WALKING AID USER [None]
